FAERS Safety Report 5534521-5 (Version None)
Quarter: 2007Q4

REPORT INFORMATION
  Report Type: 
  Country: None (occurrence: None)
  Receive Date: 20071120
  Receipt Date: 20070724
  Transmission Date: 20080405
  Serious: No
  Sender: FDA-Public Use
  Company Number: WAES 0707USA03884

PATIENT
  Sex: Female

DRUGS (3)
  1. JANUVIA [Suspect]
     Dosage: PO
     Route: 048
  2. JANUMET [Suspect]
     Dosage: PO
     Route: 048
  3. METFORMIN HCL [Concomitant]

REACTIONS (2)
  - ASTHMA [None]
  - HYPERSENSITIVITY [None]
